FAERS Safety Report 15249607 (Version 1)
Quarter: 2018Q3

REPORT INFORMATION
  Report Type: Spontaneous
  Country: ZA (occurrence: ZA)
  Receive Date: 20180807
  Receipt Date: 20180807
  Transmission Date: 20181010
  Serious: Yes (Hospitalization, Other)
  Sender: FDA-Public Use
  Company Number: ZA-PFIZER INC-2018310616

PATIENT
  Age: 77 Year
  Sex: Female

DRUGS (9)
  1. MYLAN FUROSEMIDE [Suspect]
     Active Substance: FUROSEMIDE
  2. TREPILINE [Suspect]
     Active Substance: AMITRIPTYLINE
  3. DIAPHAGE [Suspect]
     Active Substance: METFORMIN HYDROCHLORIDE
  4. ASPAVOR [Suspect]
     Active Substance: ATORVASTATIN
  5. NITROLINGUAL [Suspect]
     Active Substance: NITROGLYCERIN
  6. DIAGLUCIDE [Suspect]
     Active Substance: GLICLAZIDE
  7. PREXUM [Suspect]
     Active Substance: PERINDOPRIL ERBUMINE
  8. STILNOX [Suspect]
     Active Substance: ZOLPIDEM TARTRATE
  9. PLENISH?K [Suspect]
     Active Substance: POTASSIUM CHLORIDE

REACTIONS (1)
  - Myocardial infarction [Unknown]
